FAERS Safety Report 9438771 (Version 1)
Quarter: 2013Q3

REPORT INFORMATION
  Report Type: Spontaneous
  Country: US (occurrence: US)
  Receive Date: 20130802
  Receipt Date: 20130802
  Transmission Date: 20140515
  Serious: No
  Sender: FDA-Public Use
  Company Number: US-BAYER-2013-093366

PATIENT
  Sex: Male
  Weight: 86.17 kg

DRUGS (6)
  1. BETASERON [Suspect]
     Dosage: 0.25 MG, QOD
     Route: 058
     Dates: end: 201305
  2. CARBAMAZEPIN [Concomitant]
     Dosage: 200 MG, UNK
  3. SIMVASTATIN [Concomitant]
     Dosage: 10 MG, UNK
  4. LUTEIN [Concomitant]
     Dosage: 20 MG, UNK
  5. FISH OIL [Concomitant]
  6. MULTIVITAMIN [Concomitant]

REACTIONS (1)
  - Injection site pain [Unknown]
